FAERS Safety Report 22021005 (Version 3)
Quarter: 2023Q1

REPORT INFORMATION
  Report Type: Spontaneous
  Country: DE (occurrence: DE)
  Receive Date: 20230222
  Receipt Date: 20230330
  Transmission Date: 20230418
  Serious: No
  Sender: FDA-Public Use
  Company Number: DE-PFIZER INC-PV202300033246

PATIENT

DRUGS (1)
  1. MEDROXYPROGESTERONE [Suspect]
     Active Substance: MEDROXYPROGESTERONE
     Dosage: 0.65 ML

REACTIONS (2)
  - Drug dose omission by device [Unknown]
  - Syringe issue [Unknown]
